FAERS Safety Report 7399267-X (Version None)
Quarter: 2011Q1

REPORT INFORMATION
  Report Type: 
  Country: None (occurrence: None)
  Receive Date: 20110328
  Receipt Date: 20110315
  Transmission Date: 20110831
  Serious: Yes (Hospitalization)
  Sender: FDA-Public Use
  Company Number: DSJ-2011-03795

PATIENT
  Age: 69 Year
  Sex: Female
  Weight: 53.4 kg

DRUGS (2)
  1. OLMESARTAN MEDOXOMIL [Suspect]
     Indication: HYPERTENSION
     Dosage: 10 MG (10 MG, 1 IN 1 D), PER ORAL
     Route: 048
     Dates: start: 20100101, end: 20110223
  2. AMLODIPIN (AMLODIPINE BESILATE) (TABLET) [Concomitant]

REACTIONS (1)
  - NEUTROPHIL COUNT DECREASED [None]
